FAERS Safety Report 9748405 (Version 2)
Quarter: 2014Q2

REPORT INFORMATION
  Report Type: Report from Study
  Country: CA (occurrence: CA)
  Receive Date: 20131212
  Receipt Date: 20140417
  Transmission Date: 20141212
  Serious: Yes (Death, Other)
  Sender: FDA-Public Use
  Company Number: PHHY2013CA145234

PATIENT
  Sex: Female

DRUGS (2)
  1. CLOZARIL [Suspect]
     Indication: SCHIZOPHRENIA
  2. CLONAZEPAM [Concomitant]
     Dosage: 2 G, QHS
     Route: 048

REACTIONS (2)
  - Cardiac death [Fatal]
  - Death [Fatal]
